FAERS Safety Report 9129497 (Version 2)
Quarter: 2013Q1

REPORT INFORMATION
  Report Type: Spontaneous
  Country: JP (occurrence: JP)
  Receive Date: 20130228
  Receipt Date: 20130315
  Transmission Date: 20140127
  Serious: Yes (Other)
  Sender: FDA-Public Use
  Company Number: JP-GLAXOSMITHKLINE-B0870526A

PATIENT
  Age: 6 None
  Sex: Male

DRUGS (4)
  1. SULTANOL [Suspect]
     Indication: ASTHMA
     Route: 055
     Dates: start: 20130207
  2. SINGULAIR [Concomitant]
     Indication: ASTHMA
     Dosage: 5MG PER DAY
     Route: 048
     Dates: start: 20121015
  3. XYZAL [Concomitant]
     Indication: RHINITIS ALLERGIC
     Dosage: 2.5MG TWICE PER DAY
     Route: 048
     Dates: start: 20130207
  4. PATANOL [Concomitant]
     Indication: CONJUNCTIVITIS ALLERGIC
     Route: 031
     Dates: start: 20130207

REACTIONS (14)
  - Overdose [Unknown]
  - Nausea [Recovered/Resolved]
  - Tachycardia [Recovered/Resolved]
  - Sinus tachycardia [Unknown]
  - Pharyngeal erythema [Unknown]
  - Wheezing [Unknown]
  - Breath sounds abnormal [Unknown]
  - Use of accessory respiratory muscles [Unknown]
  - Palpitations [Unknown]
  - Dyspnoea [Unknown]
  - Heart rate increased [Unknown]
  - Cough [Unknown]
  - Rhinorrhoea [Unknown]
  - Product quality issue [Unknown]
